FAERS Safety Report 8364842-2 (Version None)
Quarter: 2012Q1

REPORT INFORMATION
  Report Type: 
  Country: None (occurrence: None)
  Receive Date: 20120323
  Receipt Date: 20111111
  Transmission Date: 20120608
  Serious: Yes (Hospitalization)
  Sender: FDA-Public Use
  Company Number: 163-21880-11111721

PATIENT
  Age: 77 Year
  Sex: Male
  Weight: 73.9363 kg

DRUGS (4)
  1. ZOMETA [Concomitant]
  2. REVLIMID [Suspect]
     Indication: MULTIPLE MYELOMA
     Dosage: 10 MG, 1 IN 1 D, PO
     Route: 048
     Dates: start: 20110201
  3. VELCADE [Concomitant]
  4. DEXAMETHASONE [Concomitant]

REACTIONS (1)
  - MULTIPLE MYELOMA [None]
